FAERS Safety Report 7962298-2 (Version None)
Quarter: 2011Q4

REPORT INFORMATION
  Report Type: 
  Country: None (occurrence: None)
  Receive Date: 20111207
  Receipt Date: 20111201
  Transmission Date: 20120403
  Serious: Yes (Other)
  Sender: FDA-Public Use
  Company Number: PHHY2011CA94635

PATIENT
  Sex: Female

DRUGS (9)
  1. NOVORAPID [Concomitant]
  2. ASPIRIN [Concomitant]
  3. ZOCOR [Concomitant]
  4. HYDROCHLOROTHIAZID [Concomitant]
  5. LEVEMIR [Concomitant]
  6. ZOLEDRONOC ACID [Suspect]
     Indication: OSTEOPOROSIS
     Dosage: UNK
     Route: 042
     Dates: start: 20091217
  7. ZOLEDRONOC ACID [Suspect]
     Dosage: UNK
     Route: 042
     Dates: start: 20101216
  8. VASOTEC [Concomitant]
  9. INSULIN [Concomitant]

REACTIONS (6)
  - VISUAL IMPAIRMENT [None]
  - DYSARTHRIA [None]
  - CEREBRAL MICROANGIOPATHY [None]
  - MEMORY IMPAIRMENT [None]
  - CONFUSIONAL STATE [None]
  - CEREBROVASCULAR ACCIDENT [None]
